FAERS Safety Report 4284145-5 (Version None)
Quarter: 2004Q1

REPORT INFORMATION
  Report Type: 
  Country: None (occurrence: None)
  Receive Date: 20040203
  Receipt Date: 20030313
  Transmission Date: 20041129
  Serious: Yes (Hospitalization)
  Sender: FDA-Public Use
  Company Number: IT-GLAXOSMITHKLINE-B0295281A

PATIENT
  Age: 5 Week
  Sex: Male

DRUGS (1)
  1. AMOXICILLIN AND CLAVULANATE POTASSIUM [Suspect]
     Indication: SKIN INFECTION
     Dosage: 3ML PER DAY
     Route: 048
     Dates: start: 20030128, end: 20030203

REACTIONS (4)
  - ANAEMIA [None]
  - COOMBS NEGATIVE HAEMOLYTIC ANAEMIA [None]
  - HAEMOLYTIC ANAEMIA [None]
  - JAUNDICE [None]
